FAERS Safety Report 8408257-7 (Version None)
Quarter: 2012Q2

REPORT INFORMATION
  Report Type: 
  Country: None (occurrence: None)
  Receive Date: 20120604
  Receipt Date: 20120525
  Transmission Date: 20120825
  Serious: Yes (Hospitalization, Other)
  Sender: FDA-Public Use
  Company Number: JP-ABBOTT-11P-087-0882085-00

PATIENT
  Sex: Female

DRUGS (2)
  1. HUMIRA [Suspect]
     Indication: RHEUMATOID ARTHRITIS
     Route: 058
     Dates: start: 20100620, end: 20111111
  2. METHOTREXATE [Concomitant]
     Indication: RHEUMATOID ARTHRITIS
     Route: 048
     Dates: start: 20060601

REACTIONS (8)
  - RASH [None]
  - VASCULITIS [None]
  - PURPURA [None]
  - POLYARTERITIS NODOSA [None]
  - PAIN IN EXTREMITY [None]
  - AUTOIMMUNE DISORDER [None]
  - COLLAGEN DISORDER [None]
  - LYMPHADENOPATHY [None]
